FAERS Safety Report 10267376 (Version 1)
Quarter: 2014Q2

REPORT INFORMATION
  Report Type: Spontaneous
  Country: TR (occurrence: TR)
  Receive Date: 20140630
  Receipt Date: 20140630
  Transmission Date: 20141212
  Serious: Yes (Other)
  Sender: FDA-Public Use
  Company Number: TR-MYLANLABS-2014S1014803

PATIENT
  Age: 54 Year
  Sex: Female

DRUGS (4)
  1. PROPYLTHIOURACIL [Suspect]
     Indication: HYPERTHYROIDISM
     Route: 065
  2. THIAMAZOLE [Suspect]
     Indication: HYPERTHYROIDISM
     Dosage: 40MG DAILY
     Route: 065
  3. LUGOL [Suspect]
     Indication: HYPERTHYROIDISM
     Route: 065
  4. METHYLPREDNISOLONE [Concomitant]
     Indication: STEROID THERAPY
     Dosage: 40MG DAILY
     Route: 065

REACTIONS (3)
  - Neutropenia [Recovered/Resolved]
  - Panniculitis [Recovered/Resolved]
  - Hyperthyroidism [Recovered/Resolved]
